FAERS Safety Report 7516362-2 (Version None)
Quarter: 2011Q2

REPORT INFORMATION
  Report Type: 
  Country: None (occurrence: None)
  Receive Date: 20110601
  Receipt Date: 20110518
  Transmission Date: 20111010
  Serious: Yes (Hospitalization, Congenital Anomaly, Other)
  Sender: FDA-Public Use
  Company Number: DE-ELI_LILLY_AND_COMPANY-DE201105005391

PATIENT
  Weight: 2.54 kg

DRUGS (10)
  1. CYMBALTA [Suspect]
     Indication: DEPRESSION
     Dosage: 60 MG, QD
     Route: 064
  2. CYMBALTA [Suspect]
     Dosage: 60 MG, QD
     Route: 064
  3. CYMBALTA [Suspect]
     Dosage: UNK, UNKNOWN
     Route: 064
     Dates: end: 20100126
  4. CYMBALTA [Suspect]
     Dosage: 30 MG, QD
     Route: 064
  5. FOLIC ACID [Concomitant]
     Indication: PROPHYLAXIS OF NEURAL TUBE DEFECT
     Dosage: 0.4 MG, QD
     Route: 064
  6. AMPICILLIN SODIUM [Concomitant]
     Indication: PREMATURE RUPTURE OF MEMBRANES
     Dosage: UNK UNK, UNKNOWN
     Route: 064
     Dates: end: 20100126
  7. CYMBALTA [Suspect]
     Dosage: 30 MG, QD
     Route: 064
  8. CYMBALTA [Suspect]
     Dosage: UNK, UNKNOWN
     Route: 064
     Dates: end: 20100126
  9. AMPICILLIN SODIUM [Concomitant]
     Dosage: UNK UNK, UNKNOWN
     Route: 064
     Dates: end: 20100126
  10. FOLIC ACID [Concomitant]
     Dosage: 0.4 MG, QD
     Route: 064

REACTIONS (10)
  - PREMATURE BABY [None]
  - HAEMANGIOMA [None]
  - TEMPERATURE REGULATION DISORDER [None]
  - TACHYCARDIA FOETAL [None]
  - LARGE FOR DATES BABY [None]
  - NEONATAL RESPIRATORY DISTRESS SYNDROME [None]
  - RETROGNATHIA [None]
  - DRUG EXPOSURE DURING PREGNANCY [None]
  - HYPOGLYCAEMIA NEONATAL [None]
  - FEEDING DISORDER NEONATAL [None]
